FAERS Safety Report 7647481-8 (Version None)
Quarter: 2011Q3

REPORT INFORMATION
  Report Type: 
  Country: None (occurrence: None)
  Receive Date: 20110801
  Receipt Date: 20110712
  Transmission Date: 20111222
  Serious: Yes (Hospitalization)
  Sender: FDA-Public Use
  Company Number: US-GLAXOSMITHKLINE-A0837844A

PATIENT
  Age: 64 Year
  Sex: Female
  Weight: 102.7 kg

DRUGS (1)
  1. AVANDIA [Suspect]
     Indication: DIABETES MELLITUS
     Dosage: 4MG PER DAY
     Route: 048
     Dates: start: 20030101, end: 20070101

REACTIONS (8)
  - MYOCARDIAL INFARCTION [None]
  - CHEST PAIN [None]
  - DYSPNOEA [None]
  - ACUTE MYOCARDIAL INFARCTION [None]
  - FLUID RETENTION [None]
  - GRAVITATIONAL OEDEMA [None]
  - WEIGHT INCREASED [None]
  - OEDEMA PERIPHERAL [None]
